FAERS Safety Report 5846264-9 (Version None)
Quarter: 2008Q3

REPORT INFORMATION
  Report Type: 
  Country: None (occurrence: None)
  Receive Date: 20080813
  Receipt Date: 20080808
  Transmission Date: 20090109
  Serious: Yes (Other)
  Sender: FDA-Public Use
  Company Number: SPV1-2008-01682

PATIENT
  Sex: Female

DRUGS (1)
  1. ADDERALL XR 30 [Suspect]
     Dosage: 30 MG : 40 MG

REACTIONS (3)
  - OVERDOSE [None]
  - SELF-INJURIOUS IDEATION [None]
  - SUICIDAL IDEATION [None]
